FAERS Safety Report 5466075-6 (Version None)
Quarter: 2007Q3

REPORT INFORMATION
  Report Type: 
  Country: None (occurrence: None)
  Receive Date: 20070924
  Receipt Date: 20070911
  Transmission Date: 20080115
  Serious: Yes (Hospitalization)
  Sender: FDA-Public Use
  Company Number: US-ELI_LILLY_AND_COMPANY-US200709001953

PATIENT
  Age: 65 Year

DRUGS (1)
  1. CYMBALTA [Suspect]

REACTIONS (1)
  - DEMENTIA [None]
